FAERS Safety Report 4518407-0 (Version None)
Quarter: 2004Q4

REPORT INFORMATION
  Report Type: 
  Country: None (occurrence: None)
  Receive Date: 20041202
  Receipt Date: 20041129
  Transmission Date: 20050328
  Serious: Yes (Hospitalization, Other)
  Sender: FDA-Public Use
  Company Number: GBWYE117918OCT04

PATIENT
  Age: 54 Year
  Sex: Male

DRUGS (2)
  1. EFFEXOR XR [Suspect]
     Indication: DEPRESSION
     Dosage: 75 MG 1X PER 1 DAY
     Route: 048
     Dates: start: 20040601, end: 20040101
  2. OLANZAPINE [Suspect]
     Indication: MAJOR DEPRESSION
     Dosage: 10 MG 1X PER 1 DAY
     Route: 048
     Dates: start: 20040601, end: 20040101

REACTIONS (2)
  - DRUG INTERACTION [None]
  - NEUROLEPTIC MALIGNANT SYNDROME [None]
